FAERS Safety Report 17068780 (Version 1)
Quarter: 2019Q4

REPORT INFORMATION
  Report Type: Spontaneous
  Country: US (occurrence: US)
  Receive Date: 20191124
  Receipt Date: 20191124
  Transmission Date: 20200122
  Serious: No
  Sender: FDA-Public Use
  Company Number: US-BIOGEN-2018BI00578246

PATIENT
  Age: 52 Year
  Sex: Female

DRUGS (6)
  1. TECFIDERA [Suspect]
     Active Substance: DIMETHYL FUMARATE
     Indication: MULTIPLE SCLEROSIS
     Route: 050
     Dates: start: 20180511
  2. TECFIDERA [Suspect]
     Active Substance: DIMETHYL FUMARATE
     Dosage: IN AM
     Route: 050
     Dates: start: 201805
  3. PROTONIX [Concomitant]
     Active Substance: PANTOPRAZOLE SODIUM
     Indication: GASTRIC DISORDER
     Route: 050
  4. TECFIDERA [Suspect]
     Active Substance: DIMETHYL FUMARATE
     Dosage: IN AM
     Route: 050
     Dates: start: 201805
  5. TECFIDERA [Suspect]
     Active Substance: DIMETHYL FUMARATE
     Dosage: FOR 7 DAYS
     Route: 050
     Dates: start: 201805
  6. TECFIDERA [Suspect]
     Active Substance: DIMETHYL FUMARATE
     Dosage: FOR 7 DAYS
     Route: 050
     Dates: start: 201805, end: 201805

REACTIONS (10)
  - Hot flush [Unknown]
  - Facial pain [Unknown]
  - Prescribed underdose [Not Recovered/Not Resolved]
  - Arthralgia [Unknown]
  - Paraesthesia [Unknown]
  - Fluid retention [Not Recovered/Not Resolved]
  - Pyrexia [Recovered/Resolved]
  - Pruritus [Unknown]
  - Pain in extremity [Unknown]
  - Medication error [Not Recovered/Not Resolved]

NARRATIVE: CASE EVENT DATE: 201805
